FAERS Safety Report 6194285-1 (Version None)
Quarter: 2009Q2

REPORT INFORMATION
  Report Type: 
  Country: None (occurrence: None)
  Receive Date: 20090519
  Receipt Date: 20090511
  Transmission Date: 20091009
  Serious: Yes (Hospitalization)
  Sender: FDA-Public Use
  Company Number: BR-ASTRAZENECA-2009UW12182

PATIENT
  Age: 84 Year
  Sex: Female

DRUGS (4)
  1. NEXIUM [Suspect]
     Indication: GASTRITIS
     Route: 048
     Dates: start: 20050101, end: 20050101
  2. NEXIUM [Suspect]
     Route: 048
     Dates: start: 20050101
  3. FORASEQ [Concomitant]
  4. EXELON [Concomitant]

REACTIONS (5)
  - COUGH [None]
  - DRUG INEFFECTIVE [None]
  - PYREXIA [None]
  - RHINORRHOEA [None]
  - URINARY TRACT INFECTION [None]
